FAERS Safety Report 23102304 (Version 1)
Quarter: 2023Q4

REPORT INFORMATION
  Report Type: Spontaneous
  Country: ES (occurrence: ES)
  Receive Date: 20231025
  Receipt Date: 20231025
  Transmission Date: 20240110
  Serious: Yes (Other)
  Sender: FDA-Public Use
  Company Number: ES-AEMPS-1438408

PATIENT
  Age: 89 Year
  Sex: Female

DRUGS (6)
  1. BISOPROLOL [Suspect]
     Active Substance: BISOPROLOL\BISOPROLOL FUMARATE
     Indication: Atrial fibrillation
     Dosage: 5 MILLIGRAM, ONCE A DAY
     Route: 048
     Dates: start: 20230905, end: 20230913
  2. DEFLAZACORT [Concomitant]
     Active Substance: DEFLAZACORT
     Indication: Polymyalgia rheumatica
     Dosage: 3 MILLIGRAM, ONCE A DAY
     Route: 048
     Dates: start: 20220221
  3. GABAPENTIN [Concomitant]
     Active Substance: GABAPENTIN
     Indication: Agitation
     Dosage: 400 MILLIGRAM, ONCE A DAY
     Route: 048
     Dates: start: 20220510, end: 20230911
  4. LEVOTHYROXINE [Concomitant]
     Active Substance: LEVOTHYROXINE
     Indication: Hypothyroidism
     Dosage: 150 MICROGRAM, ONCE A DAY
     Route: 048
     Dates: start: 20211005
  5. SIMVASTATIN [Concomitant]
     Active Substance: SIMVASTATIN
     Indication: Dyslipidaemia
     Dosage: 20 MILLIGRAM, ONCE A DAY
     Route: 048
     Dates: start: 20110315
  6. TIAPRIDE [Concomitant]
     Active Substance: TIAPRIDE
     Indication: Agitation
     Dosage: 50 MILLIGRAM, ONCE A DAY
     Route: 042
     Dates: start: 20230910, end: 20230911

REACTIONS (1)
  - Hepatitis [Recovering/Resolving]

NARRATIVE: CASE EVENT DATE: 20230911
